FAERS Safety Report 4677622-6 (Version None)
Quarter: 2005Q2

REPORT INFORMATION
  Report Type: 
  Country: None (occurrence: None)
  Receive Date: 20050531
  Receipt Date: 20050224
  Transmission Date: 20051028
  Serious: Yes (Hospitalization, Disabling)
  Sender: FDA-Public Use
  Company Number: US-ROCHE-396709

PATIENT
  Age: 19 Year
  Sex: Female
  Weight: 54.4 kg

DRUGS (2)
  1. ACCUTANE [Suspect]
     Indication: ACNE
     Route: 048
     Dates: start: 19990730, end: 19990915
  2. ACCUTANE [Suspect]
     Route: 048
     Dates: start: 19991029, end: 20000526

REACTIONS (57)
  - ABDOMINAL PAIN [None]
  - ABDOMINAL TENDERNESS [None]
  - ABNORMAL FAECES [None]
  - ACNE [None]
  - ANAEMIA [None]
  - ANHEDONIA [None]
  - ANOREXIA [None]
  - ANXIETY [None]
  - ASTHENIA [None]
  - BACK PAIN [None]
  - COLITIS [None]
  - COLITIS ULCERATIVE [None]
  - CONCUSSION [None]
  - CONDITION AGGRAVATED [None]
  - COUGH [None]
  - CROHN'S DISEASE [None]
  - DEHYDRATION [None]
  - DEPRESSION [None]
  - DIARRHOEA [None]
  - DIZZINESS [None]
  - DRUG HYPERSENSITIVITY [None]
  - DRUG INEFFECTIVE [None]
  - DRY SKIN [None]
  - EAR PAIN [None]
  - FATIGUE [None]
  - GASTROENTERITIS [None]
  - GASTROINTESTINAL DISORDER [None]
  - HAEMATOCHEZIA [None]
  - HAEMORRHAGIC CYST [None]
  - HEADACHE [None]
  - HYPOAESTHESIA [None]
  - IMPAIRED WORK ABILITY [None]
  - INFLAMMATORY BOWEL DISEASE [None]
  - INJURY [None]
  - INTESTINAL HAEMORRHAGE [None]
  - INTESTINAL OBSTRUCTION [None]
  - LARYNGITIS [None]
  - LIP DRY [None]
  - MALAISE [None]
  - MULTI-ORGAN DISORDER [None]
  - MUSCLE SPASMS [None]
  - NASOPHARYNGITIS [None]
  - NAUSEA [None]
  - NEPHROLITHIASIS [None]
  - OBSESSIVE-COMPULSIVE DISORDER [None]
  - PAIN [None]
  - PHARYNGOLARYNGEAL PAIN [None]
  - PREGNANCY TEST POSITIVE [None]
  - PYREXIA [None]
  - RASH [None]
  - RECTAL HAEMORRHAGE [None]
  - RENAL DISORDER [None]
  - SCAR [None]
  - SLEEP DISORDER [None]
  - VIRAL INFECTION [None]
  - VOMITING [None]
  - WEIGHT DECREASED [None]
